FAERS Safety Report 4855847-4 (Version None)
Quarter: 2005Q4

REPORT INFORMATION
  Report Type: 
  Country: None (occurrence: None)
  Receive Date: 20051215
  Receipt Date: 20051215
  Transmission Date: 20060501
  Serious: No
  Sender: FDA-Public Use
  Company Number: None

PATIENT
  Age: 60 Year
  Sex: Male
  Weight: 82.5547 kg

DRUGS (8)
  1. VYTORIN [Suspect]
     Indication: HYPERLIPIDAEMIA
     Dosage: 10 MG / 20 MG DAILY PO
     Route: 048
  2. CODEINE 30 / ACETAMINOPHEN 300MG [Concomitant]
  3. CYCLOBENZAPRINE HCL [Concomitant]
  4. DICLOFENAC SODIUM [Concomitant]
  5. DILTIAZEM HCL [Concomitant]
  6. GABAPENTIN HCTZ 25 / LISINOPRIL [Concomitant]
  7. METOPROLOL TARTRATE [Concomitant]
  8. OMEPRAZOLE [Concomitant]

REACTIONS (1)
  - MYALGIA [None]
